FAERS Safety Report 7097512-1 (Version None)
Quarter: 2010Q4

REPORT INFORMATION
  Report Type: 
  Country: None (occurrence: None)
  Receive Date: 20101111
  Receipt Date: 20101104
  Transmission Date: 20110411
  Serious: Yes (Death, Other)
  Sender: FDA-Public Use
  Company Number: PHHY2010TH74518

PATIENT
  Age: 93 Year
  Sex: Female

DRUGS (1)
  1. ACLASTA [Suspect]
     Dosage: UNK
     Dates: start: 20081101

REACTIONS (3)
  - BEDRIDDEN [None]
  - CYSTITIS [None]
  - SEPSIS [None]
